FAERS Safety Report 4693471-7 (Version None)
Quarter: 2005Q2

REPORT INFORMATION
  Report Type: 
  Country: None (occurrence: None)
  Receive Date: 20050617
  Receipt Date: 20050608
  Transmission Date: 20051028
  Serious: Yes (Other)
  Sender: FDA-Public Use
  Company Number: PHEH2005US06496

PATIENT
  Age: 56 Year
  Sex: Female

DRUGS (8)
  1. ZOMETA [Suspect]
     Indication: MULTIPLE MYELOMA
     Dosage: UNK, QMO
     Dates: start: 20020101, end: 20050401
  2. TYLENOL W/ CODEINE [Concomitant]
  3. NEURONTIN [Concomitant]
  4. INSULIN [Concomitant]
  5. DEXAMETHASONE [Concomitant]
  6. ARANESP [Concomitant]
  7. BIAXIN [Concomitant]
  8. THALIDOMIDE [Concomitant]

REACTIONS (4)
  - BONE DEBRIDEMENT [None]
  - IMPAIRED HEALING [None]
  - OSTEONECROSIS [None]
  - TOOTH LOSS [None]
